FAERS Safety Report 26131053 (Version 1)
Quarter: 2025Q4

REPORT INFORMATION
  Report Type: Report from Study
  Country: CA (occurrence: CA)
  Receive Date: 20251208
  Receipt Date: 20251208
  Transmission Date: 20260118
  Serious: No
  Sender: ASTELLAS
  Company Number: CA-ASTELLAS-2025-AER-066865

PATIENT
  Age: 52 Year
  Sex: Female

DRUGS (1)
  1. VEOZAH [Suspect]
     Active Substance: FEZOLINETANT
     Indication: Menopause
     Route: 048

REACTIONS (2)
  - Renal pain [Unknown]
  - Hepatic pain [Unknown]
